FAERS Safety Report 7678445-6 (Version None)
Quarter: 2011Q3

REPORT INFORMATION
  Report Type: 
  Country: None (occurrence: None)
  Receive Date: 20110811
  Receipt Date: 20110802
  Transmission Date: 20111222
  Serious: Yes (Hospitalization, Other)
  Sender: FDA-Public Use
  Company Number: US-BAYER-201037982NA

PATIENT
  Age: 24 Year
  Sex: Female
  Weight: 77.098 kg

DRUGS (2)
  1. YASMIN [Suspect]
     Dosage: UNK
     Dates: start: 20050801, end: 20060801
  2. YAZ [Suspect]
     Dates: start: 20070801, end: 20080901

REACTIONS (4)
  - DYSMENORRHOEA [None]
  - DEPRESSED MOOD [None]
  - FATIGUE [None]
  - DEEP VEIN THROMBOSIS [None]
